FAERS Safety Report 4445352-1 (Version None)
Quarter: 2004Q3

REPORT INFORMATION
  Report Type: 
  Country: None (occurrence: None)
  Receive Date: 20040907
  Receipt Date: 20040819
  Transmission Date: 20050211
  Serious: Yes (Death, Hospitalization)
  Sender: FDA-Public Use
  Company Number: DSA_24859_2004

PATIENT
  Age: 55 Year
  Sex: Female

DRUGS (15)
  1. TEMESTA [Suspect]
     Indication: ANXIETY
     Dosage: 0.5 MG QD PO
     Route: 048
     Dates: start: 20040422, end: 20040423
  2. TEMESTA [Suspect]
     Indication: ANXIETY
     Dosage: 1 MG QD PO
     Route: 048
     Dates: start: 20040420, end: 20040421
  3. TEMESTA [Suspect]
     Indication: ANXIETY
     Dosage: 1.5 MG QD PO
     Route: 048
     Dates: start: 20040418, end: 20040419
  4. TEMESTA [Suspect]
     Indication: ANXIETY
     Dosage: 2.5 MG ONCE PO
     Route: 048
     Dates: start: 20040416, end: 20040417
  5. TEMESTA [Suspect]
     Indication: ANXIETY
     Dosage: 3 MG QD PO
     Route: 048
     Dates: start: 20040219, end: 20040415
  6. TEMESTA [Suspect]
     Indication: ANXIETY
     Dosage: 2.5 MG QD PO
     Route: 048
     Dates: start: 20040211, end: 20040218
  7. TEMESTA [Suspect]
     Indication: ANXIETY
     Dosage: 3 MG QD PO
     Route: 048
     Dates: start: 20040120, end: 20040210
  8. TEMESTA [Suspect]
     Indication: ANXIETY
     Dosage: 2 MG QD PO
     Route: 048
     Dates: start: 20040113, end: 20040119
  9. TEMESTA [Suspect]
     Indication: ANXIETY
     Dosage: 2.5 MG QD PO
     Route: 048
     Dates: start: 20040105, end: 20040112
  10. TEMESTA [Suspect]
     Indication: ANXIETY
     Dosage: 3 MG QD PO
     Route: 048
     Dates: start: 20031222, end: 20040104
  11. TEMESTA [Suspect]
     Indication: ANXIETY
     Dosage: 3.5 MG QD PO
     Route: 048
     Dates: start: 20031215, end: 20031221
  12. TEMESTA [Suspect]
     Indication: ANXIETY
     Dosage: 4 MG QD PO
     Route: 048
     Dates: start: 20030715, end: 20031214
  13. CLOZAPINE [Concomitant]
  14. FLUVOXAMINE MALEATE [Concomitant]
  15. DEPAKENE [Concomitant]

REACTIONS (4)
  - ANXIETY DISORDER [None]
  - DROWNING [None]
  - DRUG LEVEL INCREASED [None]
  - HYPERHIDROSIS [None]
